FAERS Safety Report 24401902 (Version 1)
Quarter: 2024Q4

REPORT INFORMATION
  Report Type: Spontaneous
  Country: US (occurrence: None)
  Receive Date: 20241007
  Receipt Date: 20241007
  Transmission Date: 20250114
  Serious: Yes (Hospitalization, Other)
  Sender: UNICHEM
  Company Number: US-Unichem Pharmaceuticals (USA) Inc-UCM202410-001231

PATIENT
  Age: 26 Year
  Sex: Male

DRUGS (2)
  1. AMLODIPINE [Suspect]
     Active Substance: AMLODIPINE BESYLATE
     Indication: Product used for unknown indication
     Dosage: UNKNOWN
  2. ARIPIPRAZOLE [Suspect]
     Active Substance: ARIPIPRAZOLE
     Indication: Product used for unknown indication
     Dosage: UNKNOWN

REACTIONS (14)
  - Multiple organ dysfunction syndrome [Unknown]
  - Distributive shock [Unknown]
  - Renal tubular necrosis [Unknown]
  - Hypocalcaemia [Unknown]
  - Metabolic acidosis [Unknown]
  - Aspiration [Unknown]
  - Pancreatitis [Unknown]
  - Toxicity to various agents [Unknown]
  - Overdose [Unknown]
  - Toxicity to various agents [Unknown]
  - Electrolyte imbalance [Unknown]
  - Abdominal pain [Unknown]
  - Abdominal pain [Unknown]
  - Vomiting [Unknown]
